FAERS Safety Report 5267347-0 (Version None)
Quarter: 2007Q1

REPORT INFORMATION
  Report Type: 
  Country: None (occurrence: None)
  Receive Date: 20070316
  Receipt Date: 20070307
  Transmission Date: 20070707
  Serious: Yes (Hospitalization)
  Sender: FDA-Public Use
  Company Number: NZ-ROCHE-486282

PATIENT
  Age: 77 Year
  Sex: Male

DRUGS (7)
  1. SYNFLEX [Suspect]
     Indication: DRUG USE FOR UNKNOWN INDICATION
     Route: 065
     Dates: start: 20060915
  2. CARTIA XT [Concomitant]
  3. LOSEC [Concomitant]
     Indication: GASTRIC ULCER
  4. VITAMIN B6 [Concomitant]
  5. LIPEX [Concomitant]
  6. MAGNESIUM [Concomitant]
  7. ATORVASTATIN CALCIUM [Concomitant]

REACTIONS (2)
  - CHEST PAIN [None]
  - OESOPHAGEAL PAIN [None]
